FAERS Safety Report 7773112-2 (Version None)
Quarter: 2011Q3

REPORT INFORMATION
  Report Type: 
  Country: None (occurrence: None)
  Receive Date: 20110922
  Receipt Date: 20110720
  Transmission Date: 20111222
  Serious: Yes (Hospitalization, Other)
  Sender: FDA-Public Use
  Company Number: US-ASTRAZENECA-2007UW19713

PATIENT
  Age: 605 Month
  Sex: Male
  Weight: 117.9 kg

DRUGS (31)
  1. PROMETHAZINE [Concomitant]
     Route: 048
     Dates: start: 20060209
  2. PROTONIX [Concomitant]
     Dates: start: 20060607
  3. SEROQUEL [Suspect]
     Route: 048
     Dates: start: 20070423
  4. ZOLOFT [Concomitant]
     Route: 048
     Dates: start: 20050512
  5. SEROQUEL [Suspect]
     Indication: BIPOLAR DISORDER
     Dosage: VARIOUS DOSES, INCLUDING BUT NOT LIMITED TO 600 MG
     Route: 048
     Dates: start: 20050401, end: 20070501
  6. SEROQUEL [Suspect]
     Dosage: 100MG TO 600 MG
     Route: 048
     Dates: start: 20050512, end: 20070219
  7. ABILIFY [Concomitant]
     Dates: start: 20070101
  8. INVEGA [Concomitant]
     Dates: start: 20070628
  9. STRATTERA [Concomitant]
     Route: 048
     Dates: start: 20050512
  10. AMBIEN [Concomitant]
     Indication: SLEEP DISORDER
     Route: 048
     Dates: start: 20070219
  11. VYTORIN [Concomitant]
     Dosage: 10 TO 80 MG 1 TAB ONCE A DAY
     Dates: start: 20060607
  12. SEROQUEL [Suspect]
     Route: 048
     Dates: start: 20070423
  13. STRATTERA [Concomitant]
     Dosage: 60 MG 2 CAP QAM
     Dates: start: 20060607
  14. PROPOXYPHENE NAPSYLATE AND ACETAMINOPHEN [Concomitant]
     Dosage: 100-650
     Dates: start: 20070423
  15. COUMADIN [Concomitant]
     Dosage: 1 MG TO 5 MG
     Dates: start: 20060607
  16. SEROQUEL [Suspect]
     Indication: DEPRESSION
     Dosage: VARIOUS DOSES, INCLUDING BUT NOT LIMITED TO 600 MG
     Route: 048
     Dates: start: 20050401, end: 20070501
  17. SEROQUEL [Suspect]
     Dosage: 100MG TO 600 MG
     Route: 048
     Dates: start: 20050512, end: 20070219
  18. DIOVAN HCT [Concomitant]
     Dosage: 25 MG -160 MG 1 TAB ONCE A DAY
     Dates: start: 20060607
  19. ZOLOFT [Concomitant]
     Route: 048
     Dates: start: 20060607
  20. DEPAKOTE [Concomitant]
     Route: 048
     Dates: start: 20030823
  21. AMBIEN CR [Concomitant]
     Dates: start: 20070514
  22. TRAZODONE HYDROCHLORIDE [Concomitant]
     Dates: start: 20070531
  23. CRESTOR [Concomitant]
     Dates: start: 20070730
  24. ZYRTEC [Concomitant]
     Dates: start: 20060607
  25. ZOLOFT [Concomitant]
     Dosage: 100 MG - 150 MG
     Dates: start: 20050101
  26. LORTAB [Concomitant]
     Dosage: 7.5/500, 500 MG -7.5 MG 1TAB Q6H
     Dates: start: 20060607
  27. INVEGA [Concomitant]
     Dates: start: 20070101
  28. RITALIN [Concomitant]
     Route: 048
     Dates: start: 20030823
  29. ASPIRIN [Concomitant]
     Route: 048
     Dates: start: 20060209
  30. IBUPROFEN [Concomitant]
     Dates: start: 20070523
  31. OMNICEF [Concomitant]
     Dosage: 300 MG 1 CAP Q12H
     Dates: start: 20060607

REACTIONS (5)
  - GLUCOSE TOLERANCE IMPAIRED [None]
  - SUICIDAL BEHAVIOUR [None]
  - ROTATOR CUFF SYNDROME [None]
  - DIABETES MELLITUS [None]
  - SUICIDAL IDEATION [None]
